FAERS Safety Report 9276465 (Version 1)
Quarter: 2013Q2

REPORT INFORMATION
  Report Type: Spontaneous
  Country: IT (occurrence: IT)
  Receive Date: 20130507
  Receipt Date: 20130507
  Transmission Date: 20140414
  Serious: Yes (Hospitalization)
  Sender: FDA-Public Use
  Company Number: IT-TEVA-402472ISR

PATIENT
  Age: 84 Year
  Sex: Male

DRUGS (5)
  1. LEVOFLOXACIN [Suspect]
     Indication: BRONCHITIS
     Dosage: 500 MILLIGRAM DAILY;
     Route: 048
     Dates: start: 20130201, end: 20130215
  2. LASIX [Concomitant]
     Indication: CARDIAC FAILURE
     Dosage: 25 MG TABLETS
  3. CARDIOASPIRIN [Concomitant]
     Indication: MYOCARDIAL ISCHAEMIA
     Dosage: 100MG, GASTRORESISTANT TABLETS
  4. CONGESCOR [Concomitant]
     Indication: HYPERTENSION
     Dosage: 1.25 MG
  5. SIMVASTATINA ABC [Concomitant]
     Indication: MYOCARDIAL ISCHAEMIA
     Dosage: 20MG

REACTIONS (2)
  - Renal failure acute [Recovered/Resolved]
  - Metabolic acidosis [Recovered/Resolved]
